FAERS Safety Report 4524215-7 (Version None)
Quarter: 2004Q4

REPORT INFORMATION
  Report Type: 
  Country: None (occurrence: None)
  Receive Date: 20041210
  Receipt Date: 20041202
  Transmission Date: 20050328
  Serious: Yes (Hospitalization, Other)
  Sender: FDA-Public Use
  Company Number: US-ABBOTT-04P-163-0282474-00

PATIENT
  Age: 45 Year
  Sex: Male

DRUGS (5)
  1. DIVALPROEX SODIUM [Suspect]
     Indication: ALCOHOL USE
     Dates: start: 20041108, end: 20041110
  2. LORAZEPAM [Suspect]
     Indication: ALCOHOL WITHDRAWAL SYNDROME
     Route: 048
     Dates: start: 20041108, end: 20041109
  3. LORAZEPAM [Suspect]
     Indication: INSOMNIA
     Route: 048
     Dates: start: 20041110, end: 20041110
  4. LORAZEPAM [Suspect]
     Indication: TREMOR
  5. LORAZEPAM [Suspect]
     Indication: AGITATION

REACTIONS (10)
  - ABNORMAL BEHAVIOUR [None]
  - AGGRESSION [None]
  - ATAXIA [None]
  - DEPRESSION [None]
  - DYSARTHRIA [None]
  - HEAD INJURY [None]
  - IRRITABILITY [None]
  - SUICIDAL IDEATION [None]
  - TREMOR [None]
  - URINARY INCONTINENCE [None]
